FAERS Safety Report 12361297 (Version 1)
Quarter: 2016Q2

REPORT INFORMATION
  Report Type: Spontaneous
  Country: US (occurrence: US)
  Receive Date: 20160512
  Receipt Date: 20160512
  Transmission Date: 20160815
  Serious: No
  Sender: FDA-Public Use
  Company Number: US-UCBSA-2015028978

PATIENT
  Sex: Female
  Weight: 70.3 kg

DRUGS (7)
  1. IRON [Concomitant]
     Active Substance: IRON
     Indication: ANAEMIA
     Dosage: 65 MG, ONCE DAILY (QD)
     Route: 048
     Dates: start: 201502, end: 201506
  2. CLARITIN [Concomitant]
     Active Substance: LORATADINE
     Indication: HYPERSENSITIVITY
     Dosage: 75 MCG 2 DAYS
     Route: 048
     Dates: start: 1990
  3. CIMZIA [Suspect]
     Active Substance: CERTOLIZUMAB PEGOL
     Indication: CROHN^S DISEASE
     Dosage: 200 MG, EV 2 WEEKS(QOW)
     Dates: start: 201308
  4. CLARITIN [Concomitant]
     Active Substance: LORATADINE
     Dosage: 10 MG, ONCE DAILY (QD)
  5. FLONASE [Concomitant]
     Active Substance: FLUTICASONE PROPIONATE
     Indication: HYPERSENSITIVITY
     Dosage: 1 SPRAY
     Route: 045
     Dates: start: 201502
  6. PRENATAL VITAMINS [Concomitant]
     Active Substance: VITAMINS
     Indication: BREAST FEEDING
     Dosage: 2 GUMMIES
     Route: 048
     Dates: start: 201405
  7. LEVOTHYROXINE. [Concomitant]
     Active Substance: LEVOTHYROXINE
     Indication: HYPOTHYROIDISM
     Dosage: 50 MCG 5 DAYS / WEEK
     Route: 048
     Dates: start: 2009

REACTIONS (3)
  - Pregnancy [Unknown]
  - Breast feeding [Unknown]
  - Hypertension [Recovered/Resolved]

NARRATIVE: CASE EVENT DATE: 2015
